FAERS Safety Report 8375493-8 (Version None)
Quarter: 2012Q2

REPORT INFORMATION
  Report Type: 
  Country: None (occurrence: None)
  Receive Date: 20120518
  Receipt Date: 20120518
  Transmission Date: 20120825
  Serious: Yes (Other)
  Sender: FDA-Public Use
  Company Number: None

PATIENT
  Age: 73 Year
  Sex: Female
  Weight: 68 kg

DRUGS (2)
  1. PANTOPRAZOLE [Suspect]
     Indication: GASTROOESOPHAGEAL REFLUX DISEASE
     Dosage: 40 MG DAILY PO/ORAL
     Route: 048
     Dates: start: 20120301, end: 20120415
  2. PANTOPRAZOLE [Suspect]
     Indication: BARRETT'S OESOPHAGUS
     Dosage: 40 MG DAILY PO/ORAL
     Route: 048
     Dates: start: 20120301, end: 20120415

REACTIONS (2)
  - VOMITING [None]
  - NAUSEA [None]
